FAERS Safety Report 5112820-9 (Version None)
Quarter: 2006Q3

REPORT INFORMATION
  Report Type: 
  Country: None (occurrence: None)
  Receive Date: 20060922
  Receipt Date: 20060915
  Transmission Date: 20061208
  Serious: Yes (Death)
  Sender: FDA-Public Use
  Company Number: PL-BOEHRINGER INGELHEIM PHARMACEUTICALS, INC.-2006-AP-00370AP

PATIENT
  Sex: Female
  Weight: 58 kg

DRUGS (3)
  1. MICARDIS [Suspect]
     Indication: HYPERTENSION
     Route: 048
     Dates: start: 20060118, end: 20060125
  2. ATORVASTATIN [Concomitant]
     Indication: HYPERCHOLESTEROLAEMIA
  3. PRESTARIUM [Concomitant]
     Indication: HYPERTENSION

REACTIONS (1)
  - DEATH [None]
